FAERS Safety Report 10083530 (Version 3)
Quarter: 2014Q2

REPORT INFORMATION
  Report Type: Spontaneous
  Country: US (occurrence: US)
  Receive Date: 20140417
  Receipt Date: 20140520
  Transmission Date: 20141212
  Serious: Yes (Hospitalization, Other)
  Sender: FDA-Public Use
  Company Number: US-ROCHE-1379522

PATIENT
  Age: 41 Year
  Sex: Male

DRUGS (4)
  1. PEGASYS [Suspect]
     Indication: CHRONIC HEPATITIS C
     Route: 058
     Dates: start: 20140317
  2. RIBASPHERE [Suspect]
     Indication: CHRONIC HEPATITIS C
     Dosage: 3 AM AND 3 PM; 200 MG
     Route: 048
     Dates: start: 20140314
  3. RIBASPHERE [Suspect]
     Route: 048
     Dates: start: 20140317
  4. SOVALDI [Suspect]
     Indication: CHRONIC HEPATITIS C
     Route: 048
     Dates: start: 20140317

REACTIONS (7)
  - Abdominal pain upper [Not Recovered/Not Resolved]
  - Intestinal haemorrhage [Not Recovered/Not Resolved]
  - Faeces discoloured [Unknown]
  - Headache [Not Recovered/Not Resolved]
  - Diarrhoea [Unknown]
  - Epistaxis [Unknown]
  - Abdominal discomfort [Not Recovered/Not Resolved]
